FAERS Safety Report 12425001 (Version 2)
Quarter: 2016Q2

REPORT INFORMATION
  Report Type: Spontaneous
  Country: JP (occurrence: JP)
  Receive Date: 20160601
  Receipt Date: 20160617
  Transmission Date: 20160815
  Serious: Yes (Death, Hospitalization)
  Sender: FDA-Public Use
  Company Number: JP-EISAI MEDICAL RESEARCH-EC-2016-016352

PATIENT
  Age: 73 Year
  Sex: Female

DRUGS (2)
  1. LENVIMA [Suspect]
     Active Substance: LENVATINIB
     Indication: THYROID CANCER
     Route: 048
     Dates: start: 20160414, end: 20160415
  2. LENVIMA [Suspect]
     Active Substance: LENVATINIB
     Route: 048
     Dates: start: 20160416

REACTIONS (3)
  - Hypertension [Unknown]
  - Sarcoidosis [Fatal]
  - Myocardial ischaemia [Unknown]

NARRATIVE: CASE EVENT DATE: 2016
